FAERS Safety Report 5048755-X (Version None)
Quarter: 2006Q3

REPORT INFORMATION
  Report Type: 
  Country: None (occurrence: None)
  Receive Date: 20060705
  Receipt Date: 20060621
  Transmission Date: 20061208
  Serious: Yes (Death, Hospitalization)
  Sender: FDA-Public Use
  Company Number: FRWYE767722JUN06

PATIENT
  Age: 39 Year
  Sex: Male

DRUGS (16)
  1. TYGACIL [Suspect]
     Indication: ACINETOBACTER BACTERAEMIA
     Dosage: INTRAVENOUS
     Route: 042
     Dates: start: 20060107, end: 20060120
  2. TYGACIL [Suspect]
     Indication: BRONCHOPNEUMONIA
     Dosage: INTRAVENOUS
     Route: 042
     Dates: start: 20060107, end: 20060120
  3. TYGACIL [Suspect]
     Indication: ENTEROCOCCAL BACTERAEMIA
     Dosage: INTRAVENOUS
     Route: 042
     Dates: start: 20060107, end: 20060120
  4. TYGACIL [Suspect]
     Indication: PSEUDOMONAL BACTERAEMIA
     Dosage: INTRAVENOUS
     Route: 042
     Dates: start: 20060107, end: 20060120
  5. TYGACIL [Suspect]
     Indication: STENOTROPHOMONAS INFECTION
     Dosage: INTRAVENOUS
     Route: 042
     Dates: start: 20060107, end: 20060120
  6. TYGACIL [Suspect]
     Indication: ACINETOBACTER BACTERAEMIA
     Dosage: INTRAVENOUS
     Route: 042
     Dates: start: 20060206, end: 20060223
  7. TYGACIL [Suspect]
     Indication: BRONCHOPNEUMONIA
     Dosage: INTRAVENOUS
     Route: 042
     Dates: start: 20060206, end: 20060223
  8. TYGACIL [Suspect]
     Indication: ENTEROCOCCAL BACTERAEMIA
     Dosage: INTRAVENOUS
     Route: 042
     Dates: start: 20060206, end: 20060223
  9. TYGACIL [Suspect]
     Indication: PSEUDOMONAL BACTERAEMIA
     Dosage: INTRAVENOUS
     Route: 042
     Dates: start: 20060206, end: 20060223
  10. TYGACIL [Suspect]
     Indication: STENOTROPHOMONAS INFECTION
     Dosage: INTRAVENOUS
     Route: 042
     Dates: start: 20060206, end: 20060223
  11. ... [Suspect]
  12. ZYVOX [Concomitant]
  13. CLAVENTIN (CLAVULANATE POTASSIUM/TICARCILLIN DISODIUM) [Concomitant]
  14. TOBRAMYCIN [Concomitant]
  15. TIENAM (CILASTATIN/IMIPENEM) [Concomitant]
  16. AMIKIN [Concomitant]

REACTIONS (10)
  - CONDITION AGGRAVATED [None]
  - CYTOMEGALOVIRUS INFECTION [None]
  - DRUG INEFFECTIVE [None]
  - ENTEROCOCCAL SEPSIS [None]
  - HISTIOCYTOSIS HAEMATOPHAGIC [None]
  - JAUNDICE CHOLESTATIC [None]
  - PSEUDOMONAL SEPSIS [None]
  - PSEUDOMONAS INFECTION [None]
  - SEPTIC SHOCK [None]
  - SHOCK HAEMORRHAGIC [None]
